FAERS Safety Report 18989734 (Version 1)
Quarter: 2021Q1

REPORT INFORMATION
  Report Type: Spontaneous
  Country: CA (occurrence: CA)
  Receive Date: 20210309
  Receipt Date: 20210309
  Transmission Date: 20210420
  Serious: Yes (Other)
  Sender: FDA-Public Use
  Company Number: CA-CELLTRION INC.-2020CA033925

PATIENT

DRUGS (13)
  1. INFLECTRA [Suspect]
     Active Substance: INFLIXIMAB-DYYB
     Dosage: 5 MG/KG AT 0, 2 AND 6 WEEKS THEN, EVERY 8 WEEKS
     Route: 042
     Dates: start: 20210226
  2. INFLECTRA [Suspect]
     Active Substance: INFLIXIMAB-DYYB
     Indication: CROHN^S DISEASE
     Dosage: 5 MG/KG AT 0, 2 AND 6 WEEKS THEN, EVERY 8 WEEKS
     Route: 042
     Dates: start: 20201119
  3. CALCIUM [Concomitant]
     Active Substance: CALCIUM
     Dosage: 1 DF, UNKNOWN DOSAGE INFORMATION WAS PROVIDED
     Route: 041
  4. DEXILANT [Concomitant]
     Active Substance: DEXLANSOPRAZOLE
     Dosage: UNK
     Route: 065
  5. VITAMIN B12 [Concomitant]
     Active Substance: CYANOCOBALAMIN
     Dosage: 1 DF, DOSAGE INFORMATION NOT AVAILABLE
     Route: 041
  6. INFLECTRA [Suspect]
     Active Substance: INFLIXIMAB-DYYB
     Dosage: 5 MG/KG AT 0, 2 AND 6 WEEKS THEN, EVERY 8 WEEKS
     Route: 042
     Dates: start: 20201202
  7. AMLODIPINE [Concomitant]
     Active Substance: AMLODIPINE BESYLATE
     Dosage: UNK, 1 DF (DOSAGE INFORMATION NOT AVAILABLE)
     Route: 065
  8. DEXILANT [Concomitant]
     Active Substance: DEXLANSOPRAZOLE
     Dosage: 1 DF, DOSAGE INFORMATION NOT AVAILABLE
     Route: 041
  9. VITAMIN B12 [Concomitant]
     Active Substance: CYANOCOBALAMIN
     Dosage: UNK
     Route: 048
  10. OLESTYR [Concomitant]
     Active Substance: CHOLESTYRAMINE
     Dosage: UNK
     Route: 065
  11. OLESTYR [Concomitant]
     Active Substance: CHOLESTYRAMINE
     Dosage: 1 DF, DOSAGE INFORMATION WAS NOT AVAILABLE
     Route: 041
  12. INFLECTRA [Suspect]
     Active Substance: INFLIXIMAB-DYYB
     Dosage: 5 MG/KG AT 0, 2 AND 6 WEEKS THEN, EVERY 8 WEEKS
     Route: 042
     Dates: start: 20201231
  13. CALCIUM [Concomitant]
     Active Substance: CALCIUM
     Dosage: UNK
     Route: 065

REACTIONS (2)
  - Blood pressure increased [Unknown]
  - Pharyngeal neoplasm [Unknown]

NARRATIVE: CASE EVENT DATE: 20201202
